FAERS Safety Report 8376795-1 (Version None)
Quarter: 2012Q2

REPORT INFORMATION
  Report Type: 
  Country: None (occurrence: None)
  Receive Date: 20120522
  Receipt Date: 20120411
  Transmission Date: 20120825
  Serious: No
  Sender: FDA-Public Use
  Company Number: US-BRISTOL-MYERS SQUIBB COMPANY-16487159

PATIENT
  Age: 65 Year
  Sex: Male

DRUGS (2)
  1. ONGLYZA [Suspect]
     Dosage: TOOK 4 TABS FROM 7 DAY SAMPLE PACK.
     Dates: start: 20120101
  2. LISINOPRIL [Concomitant]

REACTIONS (2)
  - MALAISE [None]
  - DIZZINESS [None]
